FAERS Safety Report 20050228 (Version 1)
Quarter: 2021Q4

REPORT INFORMATION
  Report Type: Spontaneous
  Country: US (occurrence: US)
  Receive Date: 20211109
  Receipt Date: 20211109
  Transmission Date: 20220303
  Serious: No
  Sender: FDA-Public Use
  Company Number: US-PFIZER INC-202101367744

PATIENT
  Age: 3 Year
  Sex: Female

DRUGS (1)
  1. SOMATROPIN [Suspect]
     Active Substance: SOMATROPIN
     Dosage: 0.6 MG
     Dates: start: 202108

REACTIONS (3)
  - Injection site vesicles [Unknown]
  - Injection site erythema [Unknown]
  - Injection site swelling [Unknown]
